FAERS Safety Report 17721806 (Version 1)
Quarter: 2020Q2

REPORT INFORMATION
  Report Type: Spontaneous
  Country: IT (occurrence: IT)
  Receive Date: 20200429
  Receipt Date: 20200429
  Transmission Date: 20200714
  Serious: Yes (Other)
  Sender: FDA-Public Use
  Company Number: IT-SUN PHARMACEUTICAL INDUSTRIES LTD-2020RR-245173

PATIENT

DRUGS (2)
  1. SUNITINIB [Suspect]
     Active Substance: SUNITINIB
     Indication: CARCINOID TUMOUR
     Dosage: 37.5 MILLIGRAM, DAILY
     Route: 048
  2. TEMOZOLOMIDE. [Suspect]
     Active Substance: TEMOZOLOMIDE
     Indication: CARCINOID TUMOUR
     Dosage: 250 MILLIGRAM, DAILY (5 CONSECUTIVE DAYS IN A 28-DAY TREATMENT CYCLE)
     Route: 048

REACTIONS (6)
  - Disease progression [Unknown]
  - Therapeutic product effect incomplete [Unknown]
  - Oral mucosal exfoliation [Unknown]
  - Osteomyelitis [Unknown]
  - Hypertension [Unknown]
  - Skin ulcer [Unknown]
